FAERS Safety Report 11359214 (Version 10)
Quarter: 2016Q1

REPORT INFORMATION
  Report Type: Spontaneous
  Country: US (occurrence: US)
  Receive Date: 20150807
  Receipt Date: 20160329
  Transmission Date: 20160525
  Serious: Yes (Hospitalization, Other)
  Sender: FDA-Public Use
  Company Number: US-GLAXOSMITHKLINE-US2015GSK094023

PATIENT
  Age: 51 Year
  Sex: Female

DRUGS (16)
  1. FLOLAN [Suspect]
     Active Substance: EPOPROSTENOL SODIUM
     Indication: PULMONARY ARTERIAL HYPERTENSION
     Dosage: 10 NG/KG/MIN, CO
     Route: 042
     Dates: start: 20150611
  2. FLOLAN [Suspect]
     Active Substance: EPOPROSTENOL SODIUM
     Dosage: UNK, CO
     Route: 042
  3. FLOLAN [Suspect]
     Active Substance: EPOPROSTENOL SODIUM
     Dosage: 39 NG/KG/MIN CONTINUOUS
     Route: 042
  4. FLOLAN [Suspect]
     Active Substance: EPOPROSTENOL SODIUM
     Dosage: UNK
  5. COUMADIN [Concomitant]
     Active Substance: WARFARIN SODIUM
  6. FLOLAN [Suspect]
     Active Substance: EPOPROSTENOL SODIUM
     Dosage: 49 NG/KG/MIN CONTINUOUS
     Route: 042
     Dates: start: 20150611
  7. LETAIRIS [Concomitant]
     Active Substance: AMBRISENTAN
  8. FLOLAN [Suspect]
     Active Substance: EPOPROSTENOL SODIUM
     Indication: PULMONARY HYPERTENSION
     Dosage: UNK, CO
  9. FLOLAN [Suspect]
     Active Substance: EPOPROSTENOL SODIUM
     Dosage: UNK (CONCENTRATION 30,000 NG/ML, PUMP RATE 50 ML/DAY, VIAL STRENGTH 1.5 MG), CO
     Route: 042
  10. FLOLAN [Suspect]
     Active Substance: EPOPROSTENOL SODIUM
     Dosage: 29 NG/KG/MIN
  11. FLOLAN [Suspect]
     Active Substance: EPOPROSTENOL SODIUM
     Dosage: 22NG/KG/MIN
     Dates: start: 20150611
  12. FLOLAN [Suspect]
     Active Substance: EPOPROSTENOL SODIUM
     Dosage: 30NG/KG/MIN
     Dates: start: 20150611
  13. ADEMPAS [Concomitant]
     Active Substance: RIOCIGUAT
  14. FLOLAN [Suspect]
     Active Substance: EPOPROSTENOL SODIUM
     Dosage: UNK, CO
  15. FLOLAN [Suspect]
     Active Substance: EPOPROSTENOL SODIUM
     Dosage: 35 DF, UNK
     Dates: start: 20150611
  16. FLOLAN [Suspect]
     Active Substance: EPOPROSTENOL SODIUM
     Dosage: 22 NG/KG/MIN CONTINUOUSLY

REACTIONS (22)
  - Oedema peripheral [Unknown]
  - Pain in extremity [Unknown]
  - Pain in jaw [Unknown]
  - Abdominal pain upper [Unknown]
  - Arthralgia [Unknown]
  - Rash [Not Recovered/Not Resolved]
  - Fatigue [Unknown]
  - Rash pruritic [Unknown]
  - Fluid retention [Unknown]
  - Decreased appetite [Unknown]
  - Drug dose omission [Unknown]
  - Diarrhoea [Unknown]
  - Central venous catheterisation [Unknown]
  - Anxiety [Unknown]
  - Irritability [Unknown]
  - Dyspnoea exertional [Unknown]
  - Flushing [Unknown]
  - Nausea [Unknown]
  - Complication associated with device [Not Recovered/Not Resolved]
  - Headache [Unknown]
  - Emergency care examination [Unknown]
  - Pruritus [Unknown]

NARRATIVE: CASE EVENT DATE: 2015
